FAERS Safety Report 4281629-0 (Version None)
Quarter: 2004Q1

REPORT INFORMATION
  Report Type: 
  Country: None (occurrence: None)
  Receive Date: 20040105
  Receipt Date: 20021124
  Transmission Date: 20041129
  Serious: Yes (Death)
  Sender: FDA-Public Use
  Company Number: US010425

PATIENT
  Age: 59 Year
  Sex: Female
  Weight: 136.0791 kg

DRUGS (7)
  1. ACTIQ [Suspect]
     Indication: ARTHRALGIA
     Dosage: 400 UG PRN BUCCAL
     Route: 002
     Dates: start: 20021105, end: 20021121
  2. SOMA [Concomitant]
  3. ZYPREXA [Concomitant]
  4. CELEXA [Concomitant]
  5. DESYREL [Concomitant]
  6. KLONOPIN [Concomitant]
  7. DURAGESIC [Concomitant]

REACTIONS (1)
  - DEATH [None]
